FAERS Safety Report 4586421-5 (Version None)
Quarter: 2005Q1

REPORT INFORMATION
  Report Type: 
  Country: None (occurrence: None)
  Receive Date: 20050218
  Receipt Date: 20050209
  Transmission Date: 20050727
  Serious: Yes (Other)
  Sender: FDA-Public Use
  Company Number: GXKR2005JP00600

PATIENT
  Age: 37 Year
  Sex: Female

DRUGS (6)
  1. RIMACTANE [Suspect]
     Indication: LEPROSY
     Route: 048
  2. LAMPRENE [Suspect]
     Indication: LEPROSY
     Route: 048
  3. DIAPHENYLSULFON [Suspect]
     Indication: LEPROSY
     Route: 065
  4. LEVOFLOXACIN [Concomitant]
     Indication: LEPROSY
  5. CLARITHROMYCIN [Concomitant]
     Indication: LEPROSY
  6. PREDNISOLONE [Concomitant]

REACTIONS (2)
  - HAEMOLYTIC ANAEMIA [None]
  - RENAL IMPAIRMENT [None]
